FAERS Safety Report 8464825-8 (Version None)
Quarter: 2012Q2

REPORT INFORMATION
  Report Type: 
  Country: None (occurrence: None)
  Receive Date: 20120626
  Receipt Date: 20120615
  Transmission Date: 20120825
  Serious: Yes (Other)
  Sender: FDA-Public Use
  Company Number: JP-VERTEX PHARMACEUTICALS INC.-AE-2012-007096

PATIENT
  Age: 55 Year
  Sex: Female

DRUGS (9)
  1. PEGINTERFERON ALFA-2B [Concomitant]
     Route: 058
     Dates: start: 20120307
  2. RIBAVIRIN [Concomitant]
     Route: 048
     Dates: start: 20120501
  3. LIVALO [Concomitant]
     Route: 048
  4. RIBAVIRIN [Concomitant]
     Indication: HEPATITIS C
     Route: 048
     Dates: start: 20120307, end: 20120430
  5. EPADEL S [Concomitant]
     Route: 048
  6. SEFTAC [Concomitant]
     Route: 048
  7. TELAVIC (TELAPREVIR) [Suspect]
     Indication: HEPATITIS C
     Route: 048
     Dates: start: 20120307, end: 20120529
  8. CLARITIN REDITABS [Concomitant]
     Route: 048
  9. FEROTYM [Concomitant]
     Route: 048

REACTIONS (2)
  - RASH [None]
  - ANAEMIA [None]
